FAERS Safety Report 4446336-X (Version None)
Quarter: 2004Q3

REPORT INFORMATION
  Report Type: 
  Country: None (occurrence: None)
  Receive Date: 20040907
  Receipt Date: 20040824
  Transmission Date: 20050211
  Serious: Yes (Hospitalization, Other)
  Sender: FDA-Public Use
  Company Number: 2004059255

PATIENT
  Age: 39 Year
  Sex: Female
  Weight: 67.1324 kg

DRUGS (2)
  1. ZITHROMAX [Suspect]
     Indication: SINUSITIS
     Dosage: (1 IN 1 D), ORAL
     Route: 048
     Dates: start: 20031201, end: 20040102
  2. BENADRYL [Suspect]
     Indication: ILL-DEFINED DISORDER

REACTIONS (14)
  - BLOOD PRESSURE INCREASED [None]
  - CHEST DISCOMFORT [None]
  - DISEASE RECURRENCE [None]
  - DRUG EFFECT DECREASED [None]
  - DYSPEPSIA [None]
  - DYSPNOEA [None]
  - ERYTHEMA [None]
  - FATIGUE [None]
  - HEART RATE INCREASED [None]
  - OEDEMA PERIPHERAL [None]
  - OROPHARYNGEAL SWELLING [None]
  - PYREXIA [None]
  - SINUSITIS [None]
  - URTICARIA [None]
